FAERS Safety Report 9216057 (Version 1)
Quarter: 2013Q2

REPORT INFORMATION
  Report Type: Spontaneous
  Country: DE (occurrence: None)
  Receive Date: 20130402
  Receipt Date: 20130402
  Transmission Date: 20140414
  Serious: Yes (Hospitalization)
  Sender: FDA-Public Use
  Company Number: GER/GER/13/0028764

PATIENT
  Age: 14 Year
  Sex: Female
  Weight: 48 kg

DRUGS (15)
  1. OMEPRAZOLE (OMEPRAZOLE) [Suspect]
     Indication: OESOPHAGITIS
     Route: 048
     Dates: start: 201003
  2. SPIRONOLACTONE (SPIRONOLACTONE) [Suspect]
     Indication: RENAL TRANSPLANT
     Route: 048
     Dates: start: 201111
  3. LASIX (FUROSEMIDE) [Suspect]
     Indication: RENAL TRANSPLANT
     Route: 048
     Dates: start: 201111
  4. ENALAPRIL [Concomitant]
  5. PROGRAF (TACROLIMUS) [Concomitant]
  6. PREDNISONE (PREDNISONE) [Concomitant]
  7. FERRO SANOL (FERROUS SULFATE) [Concomitant]
  8. LEVOTHYROXINE SODIUM (LEVOTHYROXINE SODIUM) [Concomitant]
  9. VIGANTOLETTEN (COLECALCIFEROL) [Concomitant]
  10. BICANORM (SODIUM BICARBONATE) [Concomitant]
  11. ATENOLOL (ATENOLOL) [Concomitant]
  12. AMLODIPINE (AMLODIPINE) [Concomitant]
  13. AZATHIOPRINE (AZATHIOPRINE) [Concomitant]
  14. NEORECORMON (EPOETIN BETA) [Concomitant]
  15. NOVALGIN (NOVO-PETRIN) [Concomitant]

REACTIONS (4)
  - Gait disturbance [None]
  - Hypomagnesaemia [None]
  - Muscle spasms [None]
  - Pain in extremity [None]
